FAERS Safety Report 4828383-9 (Version None)
Quarter: 2005Q4

REPORT INFORMATION
  Report Type: 
  Country: None (occurrence: None)
  Receive Date: 20051115
  Receipt Date: 20051104
  Transmission Date: 20060501
  Serious: Yes (Death, Life-Threatening, Hospitalization)
  Sender: FDA-Public Use
  Company Number: US-MERCK-0511USA01182

PATIENT
  Age: 64 Year
  Sex: Female
  Weight: 75 kg

DRUGS (1)
  1. VIOXX [Suspect]
     Indication: ARTHRITIS
     Route: 048
     Dates: end: 20030101

REACTIONS (4)
  - ARTERIOSCLEROSIS CORONARY ARTERY [None]
  - BLADDER DISORDER [None]
  - CARDIOMEGALY [None]
  - LIMB INJURY [None]
